FAERS Safety Report 9288415 (Version 1)
Quarter: 2013Q2

REPORT INFORMATION
  Report Type: Spontaneous
  Country: DK (occurrence: DK)
  Receive Date: 20130514
  Receipt Date: 20130514
  Transmission Date: 20140414
  Serious: Yes (Hospitalization)
  Sender: FDA-Public Use
  Company Number: DK-MYLANLABS-2013S1009714

PATIENT
  Age: 50 Year
  Sex: Male

DRUGS (7)
  1. ALBUTEROL SULFATE INHALATION SOLUTION [Suspect]
     Indication: ASTHMA
     Dosage: REPEATED DOSES AS REQUIRED, APPROXIMATELY EVERY 20 MIN FOR ABOUT 11H
     Route: 055
  2. METHYLPREDNISOLONE [Concomitant]
     Indication: ASTHMA
     Dosage: 80MG
     Route: 042
  3. OXYGEN [Concomitant]
     Indication: ASTHMA
     Route: 045
  4. ATENOLOL [Concomitant]
     Route: 048
  5. SALUTEC [Concomitant]
     Route: 048
  6. FORMOTEROL W/BUDESONIDE [Concomitant]
     Route: 055
  7. TERBUTALINE [Concomitant]
     Route: 055

REACTIONS (1)
  - Lactic acidosis [Recovered/Resolved]
